FAERS Safety Report 12849181 (Version 2)
Quarter: 2016Q4

REPORT INFORMATION
  Report Type: Spontaneous
  Country: JP (occurrence: JP)
  Receive Date: 20161014
  Receipt Date: 20161031
  Transmission Date: 20170207
  Serious: Yes (Hospitalization)
  Sender: FDA-Public Use
  Company Number: JP-SA-2016SA185933

PATIENT
  Age: 67 Year
  Sex: Female

DRUGS (2)
  1. LYXUMIA [Suspect]
     Active Substance: LIXISENATIDE
     Indication: DIABETES MELLITUS
     Route: 058
  2. APLEWAY [Suspect]
     Active Substance: TOFOGLIFLOZIN
     Indication: DIABETES MELLITUS
     Route: 048

REACTIONS (4)
  - Feeding disorder [Unknown]
  - Dehydration [Recovering/Resolving]
  - Vomiting [Unknown]
  - Nausea [Unknown]

NARRATIVE: CASE EVENT DATE: 201608
